FAERS Safety Report 16340411 (Version 4)
Quarter: 2019Q4

REPORT INFORMATION
  Report Type: Spontaneous
  Country: AU (occurrence: AU)
  Receive Date: 20190522
  Receipt Date: 20191203
  Transmission Date: 20200122
  Serious: Yes (Death, Other)
  Sender: FDA-Public Use
  Company Number: AU-BRISTOL-MYERS SQUIBB COMPANY-BMS-2019-049109

PATIENT
  Age: 83 Year
  Weight: 92 kg

DRUGS (1)
  1. OPDIVO [Suspect]
     Active Substance: NIVOLUMAB
     Indication: PRODUCT USED FOR UNKNOWN INDICATION
     Dosage: 276 MILLIGRAM
     Route: 065
     Dates: start: 20181107

REACTIONS (2)
  - Death [Fatal]
  - Malignant neoplasm progression [Unknown]
